FAERS Safety Report 4562559-3 (Version None)
Quarter: 2005Q1

REPORT INFORMATION
  Report Type: 
  Country: None (occurrence: None)
  Receive Date: 20050124
  Receipt Date: 20050107
  Transmission Date: 20050727
  Serious: Yes (Hospitalization)
  Sender: FDA-Public Use
  Company Number: TAPORADR01189

PATIENT
  Age: 79 Year
  Sex: Male

DRUGS (1)
  1. LUPRON DEPOT [Suspect]
     Indication: PROSTATE CANCER
     Dosage: 7.5 MG, 1 IN 1 M, INTRAMUSCULAR
     Route: 030

REACTIONS (18)
  - ABASIA [None]
  - ANOREXIA [None]
  - APHAGIA [None]
  - ARTHRALGIA [None]
  - ASTHENIA [None]
  - BLOOD CREATINE PHOSPHOKINASE INCREASED [None]
  - CARDIAC FAILURE CONGESTIVE [None]
  - DYSPNOEA [None]
  - HYPOXIA [None]
  - MUSCLE NECROSIS [None]
  - MUSCULAR WEAKNESS [None]
  - MYALGIA [None]
  - NAUSEA [None]
  - OEDEMA PERIPHERAL [None]
  - POLYMYOSITIS [None]
  - PULMONARY OEDEMA [None]
  - PYREXIA [None]
  - VOMITING [None]
